FAERS Safety Report 9506553 (Version 2)
Quarter: 2013Q4

REPORT INFORMATION
  Report Type: Spontaneous
  Country: FR (occurrence: FR)
  Receive Date: 20130906
  Receipt Date: 20131106
  Transmission Date: 20140711
  Serious: Yes (Death, Hospitalization)
  Sender: FDA-Public Use
  Company Number: PHHY2013FR098385

PATIENT
  Sex: Female

DRUGS (5)
  1. EXELON [Suspect]
     Indication: DEMENTIA
     Dosage: 4.6 MG, QD
     Route: 062
     Dates: start: 20130819
  2. ALPRAZOLAM [Concomitant]
     Dosage: 0.5 MG, UNK
     Route: 048
  3. CARDENSIEL [Concomitant]
     Indication: HYPERTENSION
     Dosage: 1.25 MG, UNK
     Route: 048
  4. RISPERDALORO [Concomitant]
     Dosage: 1 MG, UNK
     Route: 048
  5. SEROPLEX [Concomitant]
     Dosage: 5 MG, UNK
     Route: 048

REACTIONS (2)
  - Pulmonary embolism [Fatal]
  - Respiratory distress [Fatal]
